FAERS Safety Report 21689952 (Version 1)
Quarter: 2022Q4

REPORT INFORMATION
  Report Type: Spontaneous
  Country: MX (occurrence: None)
  Receive Date: 20221206
  Receipt Date: 20221206
  Transmission Date: 20230112
  Serious: Yes (Other)
  Sender: FDA-Public Use
  Company Number: 2022A394575

PATIENT
  Age: 26085 Day
  Sex: Male
  Weight: 64 kg

DRUGS (8)
  1. DAPAGLIFLOZIN [Suspect]
     Active Substance: DAPAGLIFLOZIN
     Indication: Glucose tolerance impaired
     Route: 048
     Dates: start: 202208
  2. ATENOLOL [Suspect]
     Active Substance: ATENOLOL
     Route: 048
  3. PROPRANOLOL [Suspect]
     Active Substance: PROPRANOLOL HYDROCHLORIDE
     Route: 048
  4. AMLODIPINE [Concomitant]
     Active Substance: AMLODIPINE BESYLATE
     Route: 065
  5. TELMISARTAN [Concomitant]
     Active Substance: TELMISARTAN
     Route: 065
  6. TERAZOSIN [Concomitant]
     Active Substance: TERAZOSIN HYDROCHLORIDE
     Route: 065
  7. HISTOFIL [Concomitant]
     Route: 065
  8. VITORIN [Concomitant]
     Route: 065

REACTIONS (23)
  - Glucose urine present [Unknown]
  - Urine ketone body present [Unknown]
  - Bradycardia [Unknown]
  - Liver disorder [Unknown]
  - Arrhythmia supraventricular [Unknown]
  - Pyrexia [Not Recovered/Not Resolved]
  - Dizziness [Not Recovered/Not Resolved]
  - Amnesia [Not Recovered/Not Resolved]
  - Abdominal pain upper [Not Recovered/Not Resolved]
  - Feeling abnormal [Not Recovered/Not Resolved]
  - Balance disorder [Not Recovered/Not Resolved]
  - Blood urea increased [Unknown]
  - Blood triglycerides increased [Unknown]
  - Glycosylated haemoglobin increased [Unknown]
  - Vitamin D deficiency [Unknown]
  - Blood pressure decreased [Unknown]
  - Back pain [Unknown]
  - Neck pain [Unknown]
  - Off label use [Unknown]
  - Medication error [Unknown]
  - Product dose omission issue [Unknown]
  - Blood creatinine increased [Unknown]
  - Drug interaction [Unknown]

NARRATIVE: CASE EVENT DATE: 20220801
